FAERS Safety Report 6929838-3 (Version None)
Quarter: 2010Q3

REPORT INFORMATION
  Report Type: 
  Country: None (occurrence: None)
  Receive Date: 20100813
  Receipt Date: 20100729
  Transmission Date: 20110219
  Serious: Yes (Other)
  Sender: FDA-Public Use
  Company Number: 2010AP001585

PATIENT
  Age: 49 Year
  Sex: Female

DRUGS (6)
  1. ALENDRONATE SODIUM [Suspect]
     Indication: OSTEOPOROSIS PROPHYLAXIS
     Dosage: 70 MG;PO;QW
     Route: 048
     Dates: start: 20091101
  2. CALCIUM CARBONATE [Concomitant]
  3. AZATHIOPRINE [Concomitant]
  4. ENALAPRIL MALEATE [Concomitant]
  5. FLUOXETINE HCL [Concomitant]
  6. PREDNISOLONE [Concomitant]

REACTIONS (2)
  - INJURY [None]
  - TENDON RUPTURE [None]
